FAERS Safety Report 9404276 (Version 4)
Quarter: 2014Q4

REPORT INFORMATION
  Report Type: Spontaneous
  Country: US (occurrence: US)
  Receive Date: 20130717
  Receipt Date: 20141201
  Transmission Date: 20150529
  Serious: Yes (Hospitalization, Other)
  Sender: FDA-Public Use
  Company Number: US-BAYER-2013-084309

PATIENT
  Age: 29 Year
  Sex: Female
  Weight: 84.81 kg

DRUGS (3)
  1. MIRENA [Suspect]
     Active Substance: LEVONORGESTREL
     Indication: CONTRACEPTION
     Dosage: 20 MCG/24HR, CONT
     Route: 015
     Dates: start: 20090629, end: 201106
  2. DIFLUCAN [Concomitant]
     Active Substance: FLUCONAZOLE
  3. MACROBID [Concomitant]
     Active Substance: NITROFURANTOIN\NITROFURANTOIN MONOHYDRATE

REACTIONS (17)
  - Uterine perforation [None]
  - Device dislocation [None]
  - Pain [None]
  - Device issue [None]
  - Device difficult to use [None]
  - Medical device complication [None]
  - Injury [None]
  - Fear [None]
  - Genital haemorrhage [None]
  - Pelvic pain [None]
  - Depressed mood [None]
  - Abdominal pain [None]
  - Depression [None]
  - Anxiety [None]
  - Emotional distress [None]
  - Internal injury [None]
  - Medical device discomfort [None]

NARRATIVE: CASE EVENT DATE: 2009
